FAERS Safety Report 5326379-4 (Version None)
Quarter: 2007Q2

REPORT INFORMATION
  Report Type: 
  Country: None (occurrence: None)
  Receive Date: 20070516
  Receipt Date: 20070507
  Transmission Date: 20071010
  Serious: Yes (Life-Threatening, Hospitalization)
  Sender: FDA-Public Use
  Company Number: B0470867A

PATIENT
  Age: 89 Year
  Sex: Male

DRUGS (8)
  1. CARVEDILOL [Suspect]
     Dosage: 10MG PER DAY
     Route: 048
  2. LOSARTAN POTASSIUM [Suspect]
     Dosage: 50MG PER DAY
     Route: 048
  3. METHYLDIGOXIN [Concomitant]
     Route: 065
  4. FUROSEMIDE [Concomitant]
     Route: 065
  5. SPIRONOLACTONE [Concomitant]
     Route: 065
  6. RANITIDINE HYDROCHLORIDE [Concomitant]
     Route: 065
  7. ZOLPIDEM TARTRATE [Concomitant]
     Route: 065
  8. ASPIRIN [Concomitant]
     Route: 065

REACTIONS (5)
  - CARDIAC ARREST [None]
  - CHEST PAIN [None]
  - HYPERKALAEMIA [None]
  - RENAL IMPAIRMENT [None]
  - RESPIRATION ABNORMAL [None]
